FAERS Safety Report 13185643 (Version 1)
Quarter: 2017Q1

REPORT INFORMATION
  Report Type: Spontaneous
  Country: US (occurrence: US)
  Receive Date: 20170203
  Receipt Date: 20170203
  Transmission Date: 20170428
  Serious: No
  Sender: FDA-Public Use
  Company Number: US-BRISTOL-MYERS SQUIBB COMPANY-BMS-2017-007529

PATIENT
  Sex: Male

DRUGS (2)
  1. SPRYCEL [Suspect]
     Active Substance: DASATINIB
     Indication: TYPE 2 DIABETES MELLITUS
     Route: 065
  2. SPRYCEL [Suspect]
     Active Substance: DASATINIB
     Indication: GOUT
     Dosage: 80 MG, QD
     Route: 048

REACTIONS (2)
  - Product use issue [Unknown]
  - Blood disorder [Unknown]
